FAERS Safety Report 4471401-0 (Version None)
Quarter: 2004Q4

REPORT INFORMATION
  Report Type: 
  Country: None (occurrence: None)
  Receive Date: 20041007
  Receipt Date: 20040930
  Transmission Date: 20050328
  Serious: Yes (Hospitalization)
  Sender: FDA-Public Use
  Company Number: 04-09-1381

PATIENT
  Age: 19 Year
  Sex: Female

DRUGS (1)
  1. BACLOFEN [Suspect]
     Indication: DYSTONIA
     Dosage: 165-180U/DAY INTRATHECAL
     Route: 037

REACTIONS (12)
  - CONDITION AGGRAVATED [None]
  - DECREASED ACTIVITY [None]
  - DEVICE FAILURE [None]
  - DYSPNOEA [None]
  - DYSTONIA [None]
  - HYPERREFLEXIA [None]
  - HYPERTONIA [None]
  - MUSCLE SPASMS [None]
  - POST PROCEDURAL COMPLICATION [None]
  - RESPIRATORY DISTRESS [None]
  - STRIDOR [None]
  - VOCAL CORD DISORDER [None]
